FAERS Safety Report 14380804 (Version 1)
Quarter: 2018Q1

REPORT INFORMATION
  Report Type: Spontaneous
  Country: US (occurrence: US)
  Receive Date: 20180112
  Receipt Date: 20180112
  Transmission Date: 20180509
  Serious: No
  Sender: FDA-Public Use
  Company Number: US-VIFOR (INTERNATIONAL) INC.-VIT-2017-14044

PATIENT
  Age: 79 Year
  Sex: Female
  Weight: 84.5 kg

DRUGS (5)
  1. MIRCERA [Suspect]
     Active Substance: METHOXY POLYETHYLENE GLYCOL-EPOETIN BETA
     Indication: PRODUCT USED FOR UNKNOWN INDICATION
     Route: 040
     Dates: start: 20171218, end: 20171218
  2. CALCITRIOL. [Concomitant]
     Active Substance: CALCITRIOL
     Route: 048
     Dates: start: 2016
  3. HEPARIN [Concomitant]
     Active Substance: HEPARIN SODIUM
     Indication: ANTICOAGULANT THERAPY
     Dosage: 2000 UNITS
     Route: 040
     Dates: start: 2016
  4. CALCITRIOL. [Concomitant]
     Active Substance: CALCITRIOL
     Indication: HYPOVITAMINOSIS
     Route: 048
     Dates: start: 2016
  5. NEUROMED 7 [Concomitant]
     Indication: ANALGESIC THERAPY
     Route: 061
     Dates: start: 20160716

REACTIONS (6)
  - Drug hypersensitivity [Recovered/Resolved]
  - Ear disorder [Recovered/Resolved]
  - Ear discomfort [Recovered/Resolved]
  - Ear pruritus [Recovered/Resolved]
  - Petechiae [Recovered/Resolved]
  - Serum ferritin increased [Unknown]

NARRATIVE: CASE EVENT DATE: 20171218
